FAERS Safety Report 7813259-5 (Version None)
Quarter: 2011Q4

REPORT INFORMATION
  Report Type: 
  Country: None (occurrence: None)
  Receive Date: 20111013
  Receipt Date: 20111005
  Transmission Date: 20120403
  Serious: Yes (Hospitalization, Disabling, Other)
  Sender: FDA-Public Use
  Company Number: US-MERCK-1106USA01820

PATIENT
  Age: 53 Year
  Sex: Female

DRUGS (4)
  1. FOSAMAX [Suspect]
     Indication: OSTEOPOROSIS
     Route: 048
     Dates: start: 20020101, end: 20090101
  2. FOSAMAX [Suspect]
     Indication: OSTEOPENIA
     Route: 048
     Dates: start: 20020101, end: 20090101
  3. FOSAMAX PLUS D [Suspect]
     Route: 048
  4. ALENDRONATE SODIUM [Suspect]
     Route: 048

REACTIONS (11)
  - BREAST CANCER [None]
  - DEPRESSION [None]
  - DEVICE FAILURE [None]
  - LOW TURNOVER OSTEOPATHY [None]
  - STRESS [None]
  - FOOT FRACTURE [None]
  - ANXIETY [None]
  - FEMUR FRACTURE [None]
  - FRACTURE NONUNION [None]
  - INFECTION [None]
  - NERVE COMPRESSION [None]
